FAERS Safety Report 18785213 (Version 3)
Quarter: 2021Q1

REPORT INFORMATION
  Report Type: Spontaneous
  Country: JP (occurrence: JP)
  Receive Date: 20210125
  Receipt Date: 20210129
  Transmission Date: 20210419
  Serious: Yes (Other)
  Sender: FDA-Public Use
  Company Number: JP-SYNEX-T202100267

PATIENT
  Sex: Male

DRUGS (4)
  1. INOFLO [Suspect]
     Active Substance: NITRIC OXIDE
     Indication: PULMONARY VALVE INCOMPETENCE
  2. INOFLO [Suspect]
     Active Substance: NITRIC OXIDE
     Indication: TRICUSPID VALVE INCOMPETENCE
     Dosage: UNK (INHALATION)
     Route: 055
  3. PROSTAGLANDIN E1 [Suspect]
     Active Substance: ALPROSTADIL
     Indication: TRICUSPID VALVE INCOMPETENCE
     Dosage: UNK
     Route: 065
  4. PROSTAGLANDIN E1 [Suspect]
     Active Substance: ALPROSTADIL
     Indication: PULMONARY VALVE INCOMPETENCE

REACTIONS (1)
  - Cardiac failure [Not Recovered/Not Resolved]
